FAERS Safety Report 8447487-5 (Version None)
Quarter: 2012Q2

REPORT INFORMATION
  Report Type: 
  Country: None (occurrence: None)
  Receive Date: 20120619
  Receipt Date: 20120615
  Transmission Date: 20120825
  Serious: No
  Sender: FDA-Public Use
  Company Number: US-PFIZER INC-2012145534

PATIENT
  Sex: Male

DRUGS (2)
  1. MELOXICAM [Suspect]
     Dosage: UNK
  2. CELEBREX [Suspect]
     Dosage: UNK

REACTIONS (3)
  - URTICARIA [None]
  - ABDOMINAL PAIN UPPER [None]
  - HYPERHIDROSIS [None]
